FAERS Safety Report 10185514 (Version 1)
Quarter: 2014Q2

REPORT INFORMATION
  Report Type: Spontaneous
  Country: US (occurrence: US)
  Receive Date: 20140521
  Receipt Date: 20140521
  Transmission Date: 20141212
  Serious: Yes (Other)
  Sender: FDA-Public Use
  Company Number: US-BAYER-2014-071117

PATIENT
  Age: 69 Year
  Sex: Male
  Weight: 85.71 kg

DRUGS (1)
  1. ALKA-SELTZER PLUS SPARKLING ORIGINAL COLD FORMULA [Suspect]
     Indication: NASOPHARYNGITIS
     Dosage: 2 DF, QD
     Route: 048
     Dates: start: 201405, end: 20140512

REACTIONS (1)
  - Hypertension [Not Recovered/Not Resolved]
